FAERS Safety Report 8522387-0 (Version None)
Quarter: 2012Q3

REPORT INFORMATION
  Report Type: 
  Country: None (occurrence: None)
  Receive Date: 20120719
  Receipt Date: 20120713
  Transmission Date: 20120928
  Serious: No
  Sender: FDA-Public Use
  Company Number: US-PFIZER INC-2012169955

PATIENT
  Age: 13 Year
  Sex: Male

DRUGS (1)
  1. ZITHROMAX [Suspect]
     Dosage: UNK; FOR A FIVE DAY COURSE

REACTIONS (3)
  - IRIS DISORDER [None]
  - VISUAL IMPAIRMENT [None]
  - EYE IRRITATION [None]
